FAERS Safety Report 15858079 (Version 1)
Quarter: 2019Q1

REPORT INFORMATION
  Report Type: Report from Study
  Country: US (occurrence: US)
  Receive Date: 20190123
  Receipt Date: 20190123
  Transmission Date: 20190417
  Serious: Yes (Other)
  Sender: FDA-Public Use
  Company Number: PHEH2019US002381

PATIENT
  Sex: Female

DRUGS (2)
  1. KISQALI [Suspect]
     Active Substance: RIBOCICLIB
     Dosage: 3 DF (PILLS), QD (3 WEEKS + 1 WEEK OFF)
     Route: 048
     Dates: start: 20180526
  2. KISQALI [Suspect]
     Active Substance: RIBOCICLIB
     Indication: PRODUCT USED FOR UNKNOWN INDICATION
     Dosage: 3 DF (PILLS), QD (3 WEEKS + 1 WEEK OFF)
     Route: 048
     Dates: start: 20180204, end: 20180518

REACTIONS (1)
  - Respiratory tract infection [Unknown]
